FAERS Safety Report 24917769 (Version 3)
Quarter: 2025Q1

REPORT INFORMATION
  Report Type: Spontaneous
  Country: US (occurrence: US)
  Receive Date: 20250203
  Receipt Date: 20250301
  Transmission Date: 20250408
  Serious: Yes (Other)
  Sender: SANOFI AVENTIS
  Company Number: US-SA-2025SA031433

PATIENT
  Age: 37 Year
  Sex: Male

DRUGS (1)
  1. DUPIXENT [Suspect]
     Active Substance: DUPILUMAB
     Indication: Eosinophilic oesophagitis
     Dosage: 300 MG, QW
     Route: 058
     Dates: start: 202501

REACTIONS (15)
  - Foreign body in throat [Unknown]
  - Injection site pruritus [Recovered/Resolved]
  - Injection site reaction [Unknown]
  - Flushing [Unknown]
  - Fatigue [Unknown]
  - Myalgia [Unknown]
  - Chills [Unknown]
  - Pyrexia [Unknown]
  - Panic reaction [Unknown]
  - Malaise [Unknown]
  - Tachycardia [Unknown]
  - Pruritus [Unknown]
  - Feeling hot [Unknown]
  - Nausea [Unknown]
  - Dyspnoea [Unknown]

NARRATIVE: CASE EVENT DATE: 20250101
